FAERS Safety Report 7470681-7 (Version None)
Quarter: 2011Q2

REPORT INFORMATION
  Report Type: 
  Country: None (occurrence: None)
  Receive Date: 20110510
  Receipt Date: 20110405
  Transmission Date: 20111010
  Serious: No
  Sender: FDA-Public Use
  Company Number: US-BAYER-2011-030594

PATIENT
  Sex: Female

DRUGS (5)
  1. VITAMIN C [Concomitant]
     Indication: NASOPHARYNGITIS
     Dosage: UNK
     Route: 048
  2. LOVAZA [Concomitant]
     Indication: NASOPHARYNGITIS
     Route: 048
  3. ALEVE (CAPLET) [Suspect]
     Indication: PAIN
  4. VITAMIN D [Concomitant]
     Indication: NASOPHARYNGITIS
     Route: 048
  5. ASPIRIN [Concomitant]
     Indication: NASOPHARYNGITIS
     Route: 048

REACTIONS (2)
  - MALAISE [None]
  - PAIN [None]
